FAERS Safety Report 8453115-5 (Version None)
Quarter: 2012Q2

REPORT INFORMATION
  Report Type: 
  Country: None (occurrence: None)
  Receive Date: 20120620
  Receipt Date: 20120514
  Transmission Date: 20120825
  Serious: No
  Sender: FDA-Public Use
  Company Number: US-VERTEX PHARMACEUTICALS INC.-AE-2012-006647

PATIENT
  Sex: Male
  Weight: 83.99 kg

DRUGS (3)
  1. INCIVEK [Suspect]
     Indication: HEPATITIS C
     Route: 048
     Dates: start: 20120505
  2. RIBAVIRIN [Concomitant]
     Indication: HEPATITIS C
     Route: 048
     Dates: start: 20120505
  3. PEGASYS [Concomitant]
     Indication: HEPATITIS C
     Route: 058
     Dates: start: 20120505

REACTIONS (10)
  - HEADACHE [None]
  - DIZZINESS [None]
  - DIARRHOEA [None]
  - RASH [None]
  - RETCHING [None]
  - INFLUENZA LIKE ILLNESS [None]
  - SKIN CHAPPED [None]
  - ANAL PRURITUS [None]
  - SOMNOLENCE [None]
  - VOMITING [None]
